FAERS Safety Report 9421123 (Version 2)
Quarter: 2013Q3

REPORT INFORMATION
  Report Type: Spontaneous
  Country: JP (occurrence: JP)
  Receive Date: 20130725
  Receipt Date: 20130806
  Transmission Date: 20140515
  Serious: Yes (Other)
  Sender: FDA-Public Use
  Company Number: PHHY2013JP058081

PATIENT
  Sex: Female
  Weight: 50 kg

DRUGS (8)
  1. APRESOLINE [Suspect]
     Indication: GESTATIONAL HYPERTENSION
     Dosage: 3 DF (10 MG) DAILY
     Route: 048
     Dates: start: 20090824
  2. APRESOLINE [Suspect]
     Dosage: 1 DF (10MG), QID
     Route: 048
     Dates: start: 20090828
  3. APRESOLINE [Suspect]
     Dosage: 5 DF (10 MG) DAILY (4 DOSES PER DAY; 1 TABLET IN THE MORNING, 1 TABLET IN THE DAYTIME, 2 TABLETS IN
     Route: 048
     Dates: start: 20090907
  4. NIFEDIPINE [Suspect]
     Indication: GESTATIONAL HYPERTENSION
     Dosage: 20 MG, UNK
     Route: 048
     Dates: start: 20090908
  5. ALDOMET [Suspect]
     Indication: GESTATIONAL HYPERTENSION
     Dosage: 6 DF (125 MG) DAILY (3DOSES PER DAY)
     Route: 048
     Dates: start: 20090821
  6. ALDOMET [Suspect]
     Dosage: 12 DF (125 MG) DAILY (4 DOSES PER DAY)
     Route: 048
  7. ALDOMET [Suspect]
     Dosage: 10 DF (125 MG) DAILY (4 DOSES PER DAY)
     Route: 048
     Dates: start: 20090907
  8. AMLODIPINE [Concomitant]
     Indication: GESTATIONAL HYPERTENSION
     Dosage: 5 MG, UNK
     Route: 048
     Dates: start: 20090925

REACTIONS (3)
  - Threatened labour [Unknown]
  - Maternal exposure during pregnancy [Recovered/Resolved]
  - Blood pressure inadequately controlled [Unknown]
